FAERS Safety Report 24043700 (Version 1)
Quarter: 2024Q3

REPORT INFORMATION
  Report Type: Spontaneous
  Country: JP (occurrence: JP)
  Receive Date: 20240703
  Receipt Date: 20240703
  Transmission Date: 20241016
  Serious: Yes (Death, Hospitalization, Other)
  Sender: BRISTOL MYERS SQUIBB
  Company Number: JP-TAIHO-2024-006260

PATIENT
  Age: 71 Year
  Sex: Male
  Weight: 58.9 kg

DRUGS (12)
  1. ABRAXANE [Suspect]
     Active Substance: PACLITAXEL
     Indication: Pancreatic carcinoma metastatic
     Dosage: ON DAYS 1, 8, AND 15; CYCLE 1?DAILY DOSE: 170 MILLIGRAM(S)
     Route: 041
     Dates: start: 20240214, end: 20240214
  2. ABRAXANE [Suspect]
     Active Substance: PACLITAXEL
     Dosage: DAILY DOSE: 100 MILLIGRAM(S)
     Route: 041
  3. ABRAXANE [Suspect]
     Active Substance: PACLITAXEL
     Dosage: ON DAYS 1, 8, AND 15; CYCLE 2?DAILY DOSE: 110 MILLIGRAM(S)
     Route: 041
     Dates: start: 20240308, end: 20240315
  4. GEMCITABINE HYDROCHLORIDE [Suspect]
     Active Substance: GEMCITABINE HYDROCHLORIDE
     Indication: Pancreatic carcinoma metastatic
     Dosage: ON DAYS 1, 8, AND 15; CYCLE 1?DAILY DOSE: 1300 MILLIGRAM(S)
     Route: 041
     Dates: start: 20240214, end: 20240214
  5. GEMCITABINE HYDROCHLORIDE [Suspect]
     Active Substance: GEMCITABINE HYDROCHLORIDE
     Dosage: ON DAYS 1, 8, AND 15; WITH SUSPENSION?DAILY DOSE: 800 MILLIGRAM(S)
     Route: 041
     Dates: end: 20240315
  6. TAKECAB OD [Concomitant]
     Indication: Product used for unknown indication
     Route: 048
  7. ELIQUIS [Concomitant]
     Active Substance: APIXABAN
     Indication: Product used for unknown indication
     Route: 048
  8. DEXTROMETHORPHAN HYDROBROMIDE [Concomitant]
     Active Substance: DEXTROMETHORPHAN HYDROBROMIDE
     Indication: Product used for unknown indication
     Route: 048
  9. TACROLIMUS [Concomitant]
     Active Substance: TACROLIMUS
     Indication: Product used for unknown indication
     Route: 048
  10. ZINC [Concomitant]
     Active Substance: ZINC
     Indication: Product used for unknown indication
     Route: 048
  11. INSULIN GLARGINE BS LILLY [Concomitant]
     Indication: Product used for unknown indication
     Route: 058
  12. HUMALOG [Concomitant]
     Active Substance: INSULIN LISPRO
     Indication: Product used for unknown indication
     Route: 058

REACTIONS (4)
  - Interstitial lung disease [Fatal]
  - Platelet count decreased [Unknown]
  - Panic attack [Unknown]
  - Pneumocystis jirovecii pneumonia [Unknown]

NARRATIVE: CASE EVENT DATE: 20240228
